FAERS Safety Report 13054083 (Version 1)
Quarter: 2016Q4

REPORT INFORMATION
  Report Type: Spontaneous
  Country: CA (occurrence: CA)
  Receive Date: 20161221
  Receipt Date: 20161221
  Transmission Date: 20170207
  Serious: Yes (Life-Threatening)
  Sender: FDA-Public Use
  Company Number: None

PATIENT
  Age: 56 Year
  Sex: Male
  Weight: 90 kg

DRUGS (6)
  1. C-PAP MACHINE [Concomitant]
     Active Substance: DEVICE
  2. WELLBUTRIN (GENERIC) 150 MG [Concomitant]
     Active Substance: BUPROPION HYDROCHLORIDE
  3. TYLENOL EXTRA STRENGTH EZ [Suspect]
     Active Substance: ACETAMINOPHEN
     Indication: HEADACHE
     Dosage: ?          QUANTITY:100 TABLET(S);?
     Route: 048
     Dates: start: 20161220, end: 20161220
  4. PARIET (GENERIC) [Concomitant]
  5. CIPROLEX [Concomitant]
     Active Substance: CIPROFLOXACIN HYDROCHLORIDE
  6. LYPITOR (GENERIC) [Concomitant]

REACTIONS (6)
  - Ocular hyperaemia [None]
  - Hypersensitivity [None]
  - Eye swelling [None]
  - Dysphagia [None]
  - Eye pruritus [None]
  - Swollen tongue [None]

NARRATIVE: CASE EVENT DATE: 20161220
